FAERS Safety Report 7544464-3 (Version None)
Quarter: 2011Q2

REPORT INFORMATION
  Report Type: 
  Country: None (occurrence: None)
  Receive Date: 20110613
  Receipt Date: 20091209
  Transmission Date: 20111010
  Serious: Yes (Death, Life-Threatening)
  Sender: FDA-Public Use
  Company Number: PHHY2009JP39718

PATIENT
  Sex: Female
  Weight: 36 kg

DRUGS (8)
  1. LASIX [Concomitant]
     Dosage: 40 MG
     Route: 048
     Dates: start: 20090414
  2. RED BLOOD CELLS, CONCENTRATED [Concomitant]
     Dosage: 2 UNITS EVERY WEEK
     Dates: start: 20090414, end: 20090515
  3. EXJADE [Suspect]
     Indication: IRON OVERLOAD
  4. SCOPOLAMINE [Concomitant]
     Dosage: 30 MG, UNK
     Route: 048
     Dates: start: 20090414
  5. ALDACTONE [Concomitant]
     Dosage: 25 MG, UNK
     Route: 048
     Dates: start: 20090414
  6. MAXIPIME [Concomitant]
     Dosage: 4 G, UNK
     Route: 042
     Dates: start: 20090513, end: 20090515
  7. EXJADE [Suspect]
     Indication: MYELODYSPLASTIC SYNDROME
     Dosage: 500 MG,DAILY
     Route: 048
     Dates: start: 20090415, end: 20090512
  8. KETAS [Concomitant]
     Dosage: 30 MG, UNK
     Route: 048
     Dates: start: 20090414

REACTIONS (6)
  - RENAL IMPAIRMENT [None]
  - SEPSIS [None]
  - PYREXIA [None]
  - CONDITION AGGRAVATED [None]
  - URINE OUTPUT DECREASED [None]
  - VENTRICULAR TACHYCARDIA [None]
